FAERS Safety Report 8242265-4 (Version None)
Quarter: 2012Q1

REPORT INFORMATION
  Report Type: 
  Country: None (occurrence: None)
  Receive Date: 20120329
  Receipt Date: 20120323
  Transmission Date: 20120608
  Serious: No
  Sender: FDA-Public Use
  Company Number: US-PFIZER INC-2012077136

PATIENT
  Sex: Male
  Weight: 94.331 kg

DRUGS (7)
  1. LUPRON [Concomitant]
     Indication: PROSTATE CANCER
     Dosage: 1 INJECTION, EVERY 4 MONTHS
  2. SUTENT [Suspect]
     Indication: METASTATIC RENAL CELL CARCINOMA
     Dosage: 50 MG, UNK
     Dates: start: 20120317
  3. ACETYLSALICYLIC ACID [Concomitant]
     Indication: ATRIAL FIBRILLATION
     Dosage: 81 MG, DAILY
  4. GABAPENTIN [Concomitant]
     Indication: DIABETIC NEUROPATHY
     Dosage: 300 MG, @ HS
  5. METFORMIN [Concomitant]
     Indication: TYPE 2 DIABETES MELLITUS
     Dosage: UNK
  6. GLYBURIDE [Concomitant]
     Indication: TYPE 2 DIABETES MELLITUS
     Dosage: UNK
  7. DIPYRIDAMOLE [Concomitant]
     Indication: ATRIAL FIBRILLATION
     Dosage: 25 MG, 2X/DAY

REACTIONS (2)
  - HYPERGLYCAEMIA [None]
  - DIARRHOEA [None]
